FAERS Safety Report 9978307 (Version 3)
Quarter: 2014Q2

REPORT INFORMATION
  Report Type: Report from Study
  Country: JP (occurrence: JP)
  Receive Date: 20140306
  Receipt Date: 20140414
  Transmission Date: 20141212
  Serious: Yes (Hospitalization, Other)
  Sender: FDA-Public Use
  Company Number: JP-UCBSA-113658

PATIENT
  Age: 62 Year
  Sex: Female

DRUGS (14)
  1. CIMZIA [Suspect]
     Indication: RHEUMATOID ARTHRITIS
     Dosage: 200 MG SYRINGE
     Route: 058
     Dates: start: 20131009, end: 20131106
  2. METOLATE [Concomitant]
     Route: 048
     Dates: start: 20130701
  3. FOLIAMIN [Concomitant]
     Route: 048
     Dates: start: 20120912
  4. MUCOSTA [Concomitant]
     Dosage: 200MG DAILY
     Route: 048
     Dates: start: 20120806
  5. LOXONIN [Concomitant]
     Dates: start: 20131204
  6. NU-LOTAN [Concomitant]
     Dosage: 125MG DAILY
     Route: 048
  7. HALFDIGOXIN [Concomitant]
     Route: 048
  8. TAKEPRON [Concomitant]
     Dosage: 30MG DAILY
     Route: 048
  9. PRAZAXA [Concomitant]
     Dosage: 150MG DAILY
     Route: 048
  10. SUNRYTHM [Concomitant]
     Dosage: 150MG DAILY
     Route: 048
  11. VASOLAN [Concomitant]
     Dosage: 120MG DAILY
     Route: 048
  12. ALOSITOL [Concomitant]
     Dosage: 200MG DAILY
     Route: 048
  13. DIFLUCAN [Concomitant]
     Dosage: 100MG DAILY
     Route: 048
     Dates: start: 20130913, end: 20131204
  14. DIFLUCAN [Concomitant]
     Route: 048
     Dates: start: 20131205

REACTIONS (2)
  - Immune thrombocytopenic purpura [Recovered/Resolved]
  - Immune thrombocytopenic purpura [Not Recovered/Not Resolved]
